FAERS Safety Report 14938507 (Version 1)
Quarter: 2018Q2

REPORT INFORMATION
  Report Type: Spontaneous
  Country: US (occurrence: US)
  Receive Date: 20180525
  Receipt Date: 20180525
  Transmission Date: 20180711
  Serious: No
  Sender: FDA-Public Use
  Company Number: US-PFIZER INC-2018215085

PATIENT
  Age: 76 Year
  Sex: Female

DRUGS (4)
  1. ONDANSETRON [Concomitant]
     Active Substance: ONDANSETRON
     Dosage: UNK
  2. XARELTO [Concomitant]
     Active Substance: RIVAROXABAN
     Dosage: UNK
  3. SUTENT [Suspect]
     Active Substance: SUNITINIB MALATE
     Indication: VAGINAL CANCER
     Dosage: 50 MG, CYCLIC (EVERY DAY FOR 4 WEEKS ON, 2 WEEKS OFF)
     Route: 048
  4. PROMETHAZINE HCL [Concomitant]
     Active Substance: PROMETHAZINE HYDROCHLORIDE
     Dosage: UNK

REACTIONS (3)
  - Dyspepsia [Not Recovered/Not Resolved]
  - Product use in unapproved indication [Unknown]
  - Asthenia [Not Recovered/Not Resolved]
